FAERS Safety Report 9455946 (Version 3)
Quarter: 2013Q4

REPORT INFORMATION
  Report Type: Report from Study
  Country: US (occurrence: US)
  Receive Date: 20130813
  Receipt Date: 20131002
  Transmission Date: 20140711
  Serious: Yes (Other)
  Sender: FDA-Public Use
  Company Number: US-TEVA-425787USA

PATIENT
  Age: 24 Year
  Sex: Female

DRUGS (4)
  1. CLARAVIS [Suspect]
     Dosage: 40 MILLIGRAM DAILY;
     Route: 048
     Dates: start: 201303, end: 20130806
  2. BIRTH CONTROL PILLS [Concomitant]
  3. PROZAC [Concomitant]
     Indication: DEPRESSION
  4. WELLBUTRIN [Concomitant]
     Indication: DEPRESSION

REACTIONS (1)
  - Unintended pregnancy [Recovered/Resolved]
